FAERS Safety Report 16615120 (Version 1)
Quarter: 2019Q3

REPORT INFORMATION
  Report Type: Spontaneous
  Country: JP (occurrence: JP)
  Receive Date: 20190723
  Receipt Date: 20190723
  Transmission Date: 20191004
  Serious: Yes (Other)
  Sender: FDA-Public Use
  Company Number: JP-SA-2019SA194085

PATIENT
  Age: 72 Year
  Sex: Male

DRUGS (4)
  1. AFLIBERCEPT [Suspect]
     Active Substance: AFLIBERCEPT
     Dosage: UNK
     Route: 047
     Dates: start: 20170628
  2. AFLIBERCEPT [Suspect]
     Active Substance: AFLIBERCEPT
     Dosage: 7 TIMES IN TOTAL
     Route: 047
     Dates: start: 201708, end: 201808
  3. AFLIBERCEPT [Suspect]
     Active Substance: AFLIBERCEPT
     Indication: NEOVASCULAR AGE-RELATED MACULAR DEGENERATION
     Dosage: PRN, 10 TIMES
     Route: 047
     Dates: start: 201504, end: 201705
  4. RANIBIZUMAB. [Concomitant]
     Active Substance: RANIBIZUMAB
     Indication: NEOVASCULAR AGE-RELATED MACULAR DEGENERATION
     Dosage: PRN, ONCE
     Route: 065

REACTIONS (4)
  - Macular hole [Recovered/Resolved]
  - Visual acuity reduced [Recovering/Resolving]
  - Vitreous disorder [Unknown]
  - Vitreous degeneration [Unknown]

NARRATIVE: CASE EVENT DATE: 20170530
